FAERS Safety Report 10150936 (Version 4)
Quarter: 2014Q4

REPORT INFORMATION
  Report Type: Spontaneous
  Country: US (occurrence: US)
  Receive Date: 20140502
  Receipt Date: 20141023
  Transmission Date: 20150528
  Serious: Yes (Hospitalization, Other)
  Sender: FDA-Public Use
  Company Number: US-BAYER-2014-062960

PATIENT
  Age: 21 Year
  Sex: Female
  Weight: 72.56 kg

DRUGS (3)
  1. MIRENA [Suspect]
     Active Substance: LEVONORGESTREL
     Indication: CONTRACEPTION
     Dosage: 20 MCG/24HR, CONT
     Route: 015
     Dates: start: 20130416, end: 20130720
  2. MAGNESIUM SULFATE. [Concomitant]
     Active Substance: MAGNESIUM SULFATE
  3. LEVOTHYROXIN [Concomitant]
     Active Substance: LEVOTHYROXINE
     Indication: HYPOTHYROIDISM
     Dosage: UNK
     Dates: start: 2012

REACTIONS (10)
  - Complication of device removal [None]
  - Injury [None]
  - Fear of disease [None]
  - Fear [None]
  - Device dislocation [None]
  - Pain [None]
  - Procedural pain [None]
  - Uterine perforation [None]
  - Abdominal pain lower [None]
  - Uterine injury [None]

NARRATIVE: CASE EVENT DATE: 201304
